FAERS Safety Report 24097049 (Version 1)
Quarter: 2024Q3

REPORT INFORMATION
  Report Type: Spontaneous
  Country: US (occurrence: US)
  Receive Date: 20240716
  Receipt Date: 20240716
  Transmission Date: 20241017
  Serious: No
  Sender: PAREXEL
  Company Number: US-EVOFEM BIOSCIENCES, INC.-2023-EVO-US000057

PATIENT

DRUGS (1)
  1. PHEXXI [Suspect]
     Active Substance: CITRIC ACID MONOHYDRATE\LACTIC ACID, L-\POTASSIUM BITARTRATE
     Indication: Product used for unknown indication
     Dosage: 1 UNK DOSE
     Route: 067
     Dates: start: 20230730, end: 20230730

REACTIONS (2)
  - Vulvovaginal burning sensation [Recovered/Resolved]
  - Vaginal mucosal blistering [Recovering/Resolving]

NARRATIVE: CASE EVENT DATE: 20230730
